FAERS Safety Report 24837003 (Version 1)
Quarter: 2025Q1

REPORT INFORMATION
  Report Type: Spontaneous
  Country: US (occurrence: US)
  Receive Date: 20250113
  Receipt Date: 20250113
  Transmission Date: 20250409
  Serious: No
  Sender: HIKMA
  Company Number: US-MLMSERVICE-20241225-PI322482-00203-1

PATIENT
  Age: 24 Year
  Sex: Male

DRUGS (2)
  1. LISINOPRIL [Suspect]
     Active Substance: LISINOPRIL
     Indication: Product used for unknown indication
     Dosage: 10 MILLIGRAM, QD
     Route: 048
  2. PROPRANOLOL [Concomitant]
     Active Substance: PROPRANOLOL HYDROCHLORIDE
     Indication: Performance fear
     Route: 065

REACTIONS (1)
  - Aquagenic wrinkling of palms [Recovering/Resolving]

NARRATIVE: CASE EVENT DATE: 20231101
